FAERS Safety Report 20061547 (Version 1)
Quarter: 2021Q4

REPORT INFORMATION
  Report Type: Spontaneous
  Country: US (occurrence: US)
  Receive Date: 20211112
  Receipt Date: 20211112
  Transmission Date: 20220303
  Serious: No
  Sender: FDA-Public Use
  Company Number: US-NOVARTISTESTPH-NVSC2021US258754

PATIENT
  Sex: Female

DRUGS (5)
  1. TEGRETOL [Suspect]
     Active Substance: CARBAMAZEPINE
     Indication: Product used for unknown indication
     Route: 065
  2. DILANTIN [Suspect]
     Active Substance: PHENYTOIN
     Indication: Product used for unknown indication
     Dosage: UNK
     Route: 065
  3. PHENYTOIN [Suspect]
     Active Substance: PHENYTOIN
     Indication: Product used for unknown indication
     Dosage: UNK
     Route: 065
  4. LEXAPRO [Suspect]
     Active Substance: ESCITALOPRAM OXALATE
     Indication: Product used for unknown indication
     Dosage: UNK
     Route: 065
  5. ZONISAMIDE [Suspect]
     Active Substance: ZONISAMIDE
     Indication: Product used for unknown indication
     Route: 065

REACTIONS (2)
  - Hypersensitivity [Unknown]
  - Incorrect dose administered [Unknown]
